FAERS Safety Report 17571651 (Version 3)
Quarter: 2020Q2

REPORT INFORMATION
  Report Type: Spontaneous
  Country: US (occurrence: US)
  Receive Date: 20200323
  Receipt Date: 20200417
  Transmission Date: 20200713
  Serious: No
  Sender: FDA-Public Use
  Company Number: US-THERATECHNOLOGIES INC.-2020-THE-IBA-000064

PATIENT
  Sex: Female

DRUGS (3)
  1. DORAVIRINE [Concomitant]
     Active Substance: DORAVIRINE
  2. FOSTEMSAVIR [Concomitant]
     Active Substance: FOSTEMSAVIR
  3. TROGARZO [Suspect]
     Active Substance: IBALIZUMAB-UIYK
     Indication: HIV INFECTION
     Dosage: UNK
     Route: 042
     Dates: start: 20200225

REACTIONS (2)
  - Weight increased [Unknown]
  - Therapeutic product effect decreased [Unknown]
